FAERS Safety Report 5871389-1 (Version None)
Quarter: 2008Q3

REPORT INFORMATION
  Report Type: 
  Country: None (occurrence: None)
  Receive Date: 20080904
  Receipt Date: 20080904
  Transmission Date: 20090109
  Serious: No
  Sender: FDA-Public Use
  Company Number: None

PATIENT
  Sex: Male
  Weight: 82.5547 kg

DRUGS (1)
  1. AZASITE [Suspect]
     Indication: EYE INFECTION
     Dosage: ONE DROP BEDTIME EYE
     Route: 047
     Dates: start: 20080816, end: 20080817

REACTIONS (3)
  - APPLICATION SITE IRRITATION [None]
  - EYE INFLAMMATION [None]
  - EYE SWELLING [None]
